FAERS Safety Report 9834213 (Version 2)
Quarter: 2014Q1

REPORT INFORMATION
  Report Type: Spontaneous
  Country: US (occurrence: US)
  Receive Date: 20140122
  Receipt Date: 20140122
  Transmission Date: 20141002
  Serious: Yes (Hospitalization, Other)
  Sender: FDA-Public Use
  Company Number: US-ASTELLAS-2013US008027

PATIENT
  Age: 47 Year
  Sex: Female
  Weight: 64 kg

DRUGS (1)
  1. PROGRAF [Suspect]
     Indication: RENAL AND PANCREAS TRANSPLANT
     Dosage: 3 MG, BID
     Route: 048
     Dates: start: 19960712

REACTIONS (8)
  - Drug ineffective [Unknown]
  - Off label use [Unknown]
  - Bone disorder [Unknown]
  - Sleep apnoea syndrome [Unknown]
  - Kidney transplant rejection [Unknown]
  - Cystitis [Unknown]
  - Alopecia [Unknown]
  - Nasopharyngitis [Unknown]
